FAERS Safety Report 5468220-5 (Version None)
Quarter: 2007Q3

REPORT INFORMATION
  Report Type: 
  Country: None (occurrence: None)
  Receive Date: 20070926
  Receipt Date: 20070920
  Transmission Date: 20080115
  Serious: Yes (Congenital Anomaly)
  Sender: FDA-Public Use
  Company Number: US-GILEAD-2007-0013380

PATIENT
  Sex: Female
  Weight: 1.38 kg

DRUGS (4)
  1. ATRIPLA [Suspect]
     Route: 064
     Dates: start: 20061116, end: 20070228
  2. COMBIVIR [Concomitant]
     Route: 064
     Dates: start: 20070322
  3. VIRACEPT [Concomitant]
     Route: 064
     Dates: start: 20070322
  4. RETROVIR [Concomitant]
     Route: 064
     Dates: start: 20070728, end: 20070729

REACTIONS (2)
  - HYDROCEPHALUS [None]
  - MENINGOMYELOCELE [None]
